FAERS Safety Report 11923813 (Version 2)
Quarter: 2016Q2

REPORT INFORMATION
  Report Type: Spontaneous
  Country: US (occurrence: US)
  Receive Date: 20160118
  Receipt Date: 20160407
  Transmission Date: 20160815
  Serious: Yes (Death, Hospitalization)
  Sender: FDA-Public Use
  Company Number: US-ENDO PHARMACEUTICALS INC.-2016-000318

PATIENT
  Age: 50 Year
  Sex: Male
  Weight: 68.1 kg

DRUGS (1)
  1. DELATESTRYL [Suspect]
     Active Substance: TESTOSTERONE ENANTHATE
     Indication: ANDROGEN REPLACEMENT THERAPY
     Route: 065
     Dates: start: 2004, end: 20051026

REACTIONS (12)
  - Cardiac failure [Unknown]
  - Renal failure [Unknown]
  - Sudden cardiac death [Fatal]
  - Delirium [Unknown]
  - Myocardial infarction [Unknown]
  - Chronic obstructive pulmonary disease [Unknown]
  - Pneumonia [Recovering/Resolving]
  - Cardiac failure congestive [Fatal]
  - Streptococcal infection [Unknown]
  - Cardiac valve disease [Fatal]
  - Cor pulmonale [Unknown]
  - Polycythaemia [Unknown]

NARRATIVE: CASE EVENT DATE: 20040816
